FAERS Safety Report 6540425-1 (Version None)
Quarter: 2010Q1

REPORT INFORMATION
  Report Type: 
  Country: None (occurrence: None)
  Receive Date: 20100113
  Receipt Date: 20100104
  Transmission Date: 20100710
  Serious: Yes (Other)
  Sender: FDA-Public Use
  Company Number: 2009SP036672

PATIENT
  Age: 19 Year
  Sex: Female
  Weight: 47.6277 kg

DRUGS (1)
  1. IMPLANON [Suspect]
     Indication: CONTRACEPTION
     Dosage: 1 DF; ; SBDE
     Route: 059
     Dates: start: 20081020

REACTIONS (11)
  - AGITATION [None]
  - CONVULSION [None]
  - DEPRESSION [None]
  - FEAR [None]
  - HEADACHE [None]
  - MALAISE [None]
  - MOOD SWINGS [None]
  - NAUSEA [None]
  - SLEEP DISORDER [None]
  - SUICIDAL IDEATION [None]
  - VAGINAL HAEMORRHAGE [None]
